FAERS Safety Report 14568629 (Version 1)
Quarter: 2018Q1

REPORT INFORMATION
  Report Type: Spontaneous
  Country: JP (occurrence: JP)
  Receive Date: 20180223
  Receipt Date: 20180223
  Transmission Date: 20180509
  Serious: Yes (Death)
  Sender: FDA-Public Use
  Company Number: JP-BIOCRYST PHARMACEUTICALS, INC.-2018BCR00026

PATIENT
  Age: 86 Year
  Sex: Male

DRUGS (2)
  1. RAPIACTA [Suspect]
     Active Substance: PERAMIVIR
     Indication: INFLUENZA
     Dosage: 600 MG, UNK
     Route: 042
     Dates: start: 20180207, end: 20180207
  2. SOLITA-T NO.1 [Concomitant]
     Indication: ASCITES
     Dosage: 500 ML, 1X/DAY
     Route: 042
     Dates: start: 20180207, end: 20180207

REACTIONS (1)
  - Cardio-respiratory arrest [Fatal]

NARRATIVE: CASE EVENT DATE: 20180207
